FAERS Safety Report 5937948-2 (Version None)
Quarter: 2008Q4

REPORT INFORMATION
  Report Type: 
  Country: None (occurrence: None)
  Receive Date: 20081031
  Receipt Date: 20081022
  Transmission Date: 20090506
  Serious: Yes (Hospitalization, Other)
  Sender: FDA-Public Use
  Company Number: AU-ABBOTT-05P-008-0314605-00

PATIENT
  Sex: Female

DRUGS (1)
  1. REDUCTIL [Suspect]
     Indication: DRUG USE FOR UNKNOWN INDICATION
     Dates: start: 20040101, end: 20040101

REACTIONS (7)
  - ABNORMAL BEHAVIOUR [None]
  - ARRHYTHMIA [None]
  - CARDIAC ARREST [None]
  - COMA [None]
  - HYPOXIC ENCEPHALOPATHY [None]
  - MOVEMENT DISORDER [None]
  - VENTRICULAR FIBRILLATION [None]
